FAERS Safety Report 9064447 (Version 1)
Quarter: 2013Q1

REPORT INFORMATION
  Report Type: Spontaneous
  Country: MX (occurrence: MX)
  Receive Date: 20130128
  Receipt Date: 20130128
  Transmission Date: 20140127
  Serious: Yes (Other)
  Sender: FDA-Public Use
  Company Number: PHHY2013MX006412

PATIENT
  Age: 82 Year
  Sex: Male

DRUGS (3)
  1. ONBREZ [Suspect]
     Indication: CHRONIC OBSTRUCTIVE PULMONARY DISEASE
     Dosage: 300 UG, QD
     Dates: start: 20110816
  2. FORADIL [Suspect]
     Indication: ASTHMA
     Dosage: 2 UNKNOWN DAILY
     Dates: start: 20110613
  3. MIFLONIDE [Suspect]
     Indication: ASTHMA
     Dosage: 1 UNKNOWN DAILY
     Dates: start: 20110613

REACTIONS (2)
  - Dyspnoea [Not Recovered/Not Resolved]
  - General physical health deterioration [Not Recovered/Not Resolved]
